FAERS Safety Report 8511690-6 (Version None)
Quarter: 2012Q3

REPORT INFORMATION
  Report Type: 
  Country: None (occurrence: None)
  Receive Date: 20120716
  Receipt Date: 20120710
  Transmission Date: 20120928
  Serious: Yes (Death, Hospitalization)
  Sender: FDA-Public Use
  Company Number: JP-GENZYME-THYM-1003256

PATIENT
  Sex: Female
  Weight: 49 kg

DRUGS (2)
  1. THYMOGLOBULIN [Suspect]
     Indication: APLASTIC ANAEMIA
     Dosage: 125 MG, QD
     Route: 065
     Dates: start: 20100201, end: 20100205
  2. CYCLOSPORINE [Suspect]
     Indication: APLASTIC ANAEMIA
     Dosage: UNK
     Route: 065
     Dates: start: 20100212, end: 20100525

REACTIONS (2)
  - POST TRANSPLANT LYMPHOPROLIFERATIVE DISORDER [None]
  - CYTOMEGALOVIRUS TEST POSITIVE [None]
